FAERS Safety Report 14121142 (Version 1)
Quarter: 2017Q4

REPORT INFORMATION
  Report Type: Spontaneous
  Country: US (occurrence: US)
  Receive Date: 20171024
  Receipt Date: 20171024
  Transmission Date: 20180321
  Serious: No
  Sender: FDA-Public Use
  Company Number: US-PERRIGO-17US001073

PATIENT
  Age: 87 Year
  Sex: Female
  Weight: 38.55 kg

DRUGS (1)
  1. IMIQUIMOD. [Suspect]
     Active Substance: IMIQUIMOD
     Indication: HYPERKERATOSIS
     Dosage: TINY AMOUNT, QHS
     Route: 061
     Dates: start: 201701, end: 20170123

REACTIONS (4)
  - Application site swelling [Not Recovered/Not Resolved]
  - Inappropriate schedule of drug administration [Recovered/Resolved]
  - Application site scab [Not Recovered/Not Resolved]
  - Application site discomfort [Not Recovered/Not Resolved]

NARRATIVE: CASE EVENT DATE: 201701
